FAERS Safety Report 11469603 (Version 2)
Quarter: 2016Q2

REPORT INFORMATION
  Report Type: Report from Study
  Country: BR (occurrence: BR)
  Receive Date: 20150908
  Receipt Date: 20160516
  Transmission Date: 20160815
  Serious: Yes (Other)
  Sender: FDA-Public Use
  Company Number: BR-ABBVIE-15K-020-1458017-00

PATIENT
  Sex: Male
  Weight: 78 kg

DRUGS (6)
  1. HUMIRA [Suspect]
     Active Substance: ADALIMUMAB
     Route: 058
     Dates: start: 201203
  2. ROSUVASTATIN. [Concomitant]
     Active Substance: ROSUVASTATIN
     Indication: BLOOD CHOLESTEROL ABNORMAL
     Route: 048
     Dates: start: 2007
  3. HUMIRA [Suspect]
     Active Substance: ADALIMUMAB
     Indication: CROHN^S DISEASE
     Dosage: LOADING DOSE
     Route: 058
     Dates: start: 20120312, end: 20120312
  4. DIOVAN [Concomitant]
     Active Substance: VALSARTAN
     Indication: HYPERTENSION
     Route: 048
  5. VITAMIN B COMPLEX [Concomitant]
     Active Substance: CYANOCOBALAMIN\DEXPANTHENOL\NIACINAMIDE\PYRIDOXINE HYDROCHLORIDE\RIBOFLAVIN 5^-PHOSPHATE SODIUM\THIAMINE HYDROCHLORIDE\VITAMIN B COMPLEX
     Indication: VITAMIN SUPPLEMENTATION
     Route: 048
     Dates: start: 201506
  6. SIMVASTATIN. [Concomitant]
     Active Substance: SIMVASTATIN
     Indication: BLOOD TRIGLYCERIDES ABNORMAL
     Route: 048

REACTIONS (12)
  - Intestinal obstruction [Recovered/Resolved]
  - Weight decreased [Unknown]
  - Intestinal stenosis [Unknown]
  - Weight increased [Recovered/Resolved]
  - Blood pressure abnormal [Recovered/Resolved]
  - Gastrointestinal motility disorder [Unknown]
  - Umbilical hernia [Recovered/Resolved]
  - Constipation [Unknown]
  - Inadequate diet [Unknown]
  - Intestinal fibrosis [Unknown]
  - Connective tissue disorder [Unknown]
  - Pain [Unknown]

NARRATIVE: CASE EVENT DATE: 2014
